FAERS Safety Report 7812009-6 (Version None)
Quarter: 2011Q4

REPORT INFORMATION
  Report Type: 
  Country: None (occurrence: None)
  Receive Date: 20111013
  Receipt Date: 20111005
  Transmission Date: 20120403
  Serious: Yes (Other)
  Sender: FDA-Public Use
  Company Number: US-BAXTER-2011BH011864

PATIENT
  Age: 74 Year
  Sex: Male
  Weight: 86 kg

DRUGS (3)
  1. REGLAN [Suspect]
     Indication: PRODUCT USED FOR UNKNOWN INDICATION
     Route: 065
     Dates: start: 19921006, end: 19921010
  2. REGLAN [Suspect]
     Route: 065
     Dates: start: 20090806, end: 20090807
  3. REGLAN [Suspect]
     Route: 065
     Dates: start: 20070514, end: 20070521

REACTIONS (21)
  - PLEURAL EFFUSION [None]
  - CLOSTRIDIUM DIFFICILE COLITIS [None]
  - SMALL INTESTINAL OBSTRUCTION [None]
  - DEHYDRATION [None]
  - CHANGE OF BOWEL HABIT [None]
  - HAEMATEMESIS [None]
  - ANXIETY [None]
  - HYPERTENSION [None]
  - ANAEMIA [None]
  - TREMOR [None]
  - RECTAL POLYP [None]
  - DYSKINESIA [None]
  - NEUTROPENIC SEPSIS [None]
  - TACHYCARDIA [None]
  - DIARRHOEA [None]
  - NAUSEA [None]
  - DIZZINESS [None]
  - METASTASES TO PLEURA [None]
  - MALNUTRITION [None]
  - ASTHENIA [None]
  - ABDOMINAL PAIN [None]
